FAERS Safety Report 6210780-0 (Version None)
Quarter: 2009Q2

REPORT INFORMATION
  Report Type: 
  Country: None (occurrence: None)
  Receive Date: 20090601
  Receipt Date: 20080811
  Transmission Date: 20091009
  Serious: Yes (Hospitalization)
  Sender: FDA-Public Use
  Company Number: TR-WYE-H09305609

PATIENT
  Age: 5 Day
  Sex: Female
  Weight: 129 kg

DRUGS (1)
  1. IBUPROFEN [Suspect]
     Indication: PATENT DUCTUS ARTERIOSUS
     Dosage: 10 MG/KG FOLLOWED BY TWO DOSES OF 5 MG/KG AT 12-H INTERVAL
     Route: 048

REACTIONS (2)
  - PULMONARY OEDEMA [None]
  - RENAL FAILURE ACUTE [None]
